FAERS Safety Report 6709098-9 (Version None)
Quarter: 2010Q2

REPORT INFORMATION
  Report Type: 
  Country: None (occurrence: None)
  Receive Date: 20100504
  Receipt Date: 20100427
  Transmission Date: 20101027
  Serious: Yes (Hospitalization, Other)
  Sender: FDA-Public Use
  Company Number: US-BAYER-201016019NA

PATIENT
  Age: 45 Year
  Sex: Female

DRUGS (7)
  1. BETASERON [Suspect]
     Indication: RELAPSING-REMITTING MULTIPLE SCLEROSIS
     Dosage: TOTAL DAILY DOSE: 6 MIU
     Route: 058
     Dates: start: 20100113
  2. BETASERON [Suspect]
     Dosage: TOTAL DAILY DOSE: 8 MIU
     Route: 058
  3. BETASERON [Suspect]
     Dosage: TOTAL DAILY DOSE: 8 MIU
     Route: 058
  4. TOPAMAX [Suspect]
     Indication: MIGRAINE
     Route: 065
     Dates: start: 20100201
  5. TOPAMAX [Suspect]
     Route: 065
  6. AMOXICILLIN [Concomitant]
     Indication: SINUSITIS
     Dosage: TOTAL DAILY DOSE: 875 MG
     Route: 048
  7. PRIMIDONE [Concomitant]
     Indication: TREMOR
     Dosage: TOTAL DAILY DOSE: 200 MG
     Route: 048

REACTIONS (6)
  - DELIRIUM [None]
  - INSOMNIA [None]
  - MIGRAINE [None]
  - PAIN [None]
  - SINUSITIS [None]
  - VAGINAL CANCER [None]
